FAERS Safety Report 9507708 (Version 1)
Quarter: 2013Q3

REPORT INFORMATION
  Report Type: Spontaneous
  Country: US (occurrence: None)
  Receive Date: 20130906
  Receipt Date: 20130906
  Transmission Date: 20140515
  Serious: Yes (Other)
  Sender: FDA-Public Use
  Company Number: None

PATIENT
  Age: 63 Year
  Sex: Male

DRUGS (1)
  1. TESTOPEL [Suspect]
     Dosage: 10 PELLETS Q6M SQ
     Route: 058
     Dates: start: 20130520

REACTIONS (3)
  - Purulent discharge [None]
  - Inflammation [None]
  - Device expulsion [None]
